FAERS Safety Report 10010132 (Version 1)
Quarter: 2014Q1

REPORT INFORMATION
  Report Type: Spontaneous
  Country: FR (occurrence: FR)
  Receive Date: 20140313
  Receipt Date: 20140313
  Transmission Date: 20141002
  Serious: Yes (Other)
  Sender: FDA-Public Use
  Company Number: FR-RB-064454-14

PATIENT
  Sex: Male

DRUGS (3)
  1. SUBUTEX [Suspect]
     Dosage: DOSING REGIMEN UNKNOWN; EXPOSURE VIA MOTHER
     Route: 064
  2. SUBUTEX [Suspect]
     Dosage: DOSING REGIMEN UNKNOWN; EXPOSURE VIA FATHER
     Route: 064
  3. SUBUTEX [Suspect]
     Indication: PRODUCT USED FOR UNKNOWN INDICATION
     Dosage: DOSING DETAILS UNKNOWN
     Route: 063

REACTIONS (7)
  - Foetal exposure during pregnancy [Recovered/Resolved]
  - Exposure during breast feeding [Recovered/Resolved]
  - Low birth weight baby [Unknown]
  - Premature baby [Recovered/Resolved]
  - Drug withdrawal syndrome neonatal [Unknown]
  - Tremor [Unknown]
  - Exposure via father [Recovered/Resolved]
